FAERS Safety Report 8256209-2 (Version None)
Quarter: 2012Q2

REPORT INFORMATION
  Report Type: 
  Country: None (occurrence: None)
  Receive Date: 20120403
  Receipt Date: 20120319
  Transmission Date: 20120825
  Serious: Yes (Hospitalization, Other)
  Sender: FDA-Public Use
  Company Number: CA-ROCHE-793296

PATIENT
  Sex: Male

DRUGS (16)
  1. SULFASALAZINE [Concomitant]
  2. VITAMIN D [Concomitant]
  3. CALCIUM CARBONATE [Concomitant]
  4. FOLIC ACID [Concomitant]
  5. GLICLAZIDE [Concomitant]
  6. RABEPRAZOLE SODIUM [Concomitant]
  7. FLUCONAZOLE [Concomitant]
  8. OXYCODONE HCL [Concomitant]
  9. PREDNISONE [Concomitant]
  10. ACTEMRA [Suspect]
     Indication: RHEUMATOID ARTHRITIS
     Dosage: FREQUENCY REPORTED 4 WEEKS
     Route: 042
     Dates: start: 20110627, end: 20110627
  11. ACTEMRA [Suspect]
     Route: 042
     Dates: start: 20110627, end: 20120118
  12. SITAGLIPTIN [Concomitant]
     Indication: DIABETES MELLITUS
  13. DULOXETIME HYDROCHLORIDE [Concomitant]
  14. ALBUTEROL [Concomitant]
  15. METFORMIN HCL [Concomitant]
  16. HYDROXYCHLOROQUINE SULFATE [Concomitant]

REACTIONS (9)
  - MYOCARDIAL INFARCTION [None]
  - ARTHRALGIA [None]
  - JOINT SWELLING [None]
  - CHRONIC OBSTRUCTIVE PULMONARY DISEASE [None]
  - COUGH [None]
  - FATIGUE [None]
  - INTRACARDIAC THROMBUS [None]
  - PNEUMONIA [None]
  - NASOPHARYNGITIS [None]
